FAERS Safety Report 8301185-7 (Version None)
Quarter: 2012Q2

REPORT INFORMATION
  Report Type: 
  Country: None (occurrence: None)
  Receive Date: 20120420
  Receipt Date: 20120412
  Transmission Date: 20120825
  Serious: Yes (Other)
  Sender: FDA-Public Use
  Company Number: CA-JNJFOC-20120405776

PATIENT
  Age: 7 Year
  Sex: Female

DRUGS (3)
  1. CONCERTA [Suspect]
     Indication: ATTENTION DEFICIT/HYPERACTIVITY DISORDER
     Route: 048
     Dates: start: 20110801
  2. CONCERTA [Suspect]
     Route: 048
     Dates: start: 20110201
  3. CONCERTA [Suspect]
     Route: 048
     Dates: start: 20111201

REACTIONS (2)
  - AGGRESSION [None]
  - BIPOLAR DISORDER [None]
